FAERS Safety Report 8836831 (Version 2)
Quarter: 2013Q1

REPORT INFORMATION
  Report Type: Spontaneous
  Country: US (occurrence: None)
  Receive Date: 20121010
  Receipt Date: 20121106
  Transmission Date: 20140127
  Serious: Yes (Hospitalization, Other)
  Sender: FDA-Public Use
  Company Number: DSU-2012-07916

PATIENT
  Age: 74 Year
  Sex: Male
  Weight: 78.02 kg

DRUGS (1)
  1. BENICAR HCT [Suspect]
     Indication: HYPERTENSION
     Route: 048
     Dates: start: 2006, end: 201207

REACTIONS (12)
  - Gastrooesophageal reflux disease [None]
  - Hiccups [None]
  - Eructation [None]
  - Abdominal distension [None]
  - Nausea [None]
  - Aphagia [None]
  - Weight decreased [None]
  - Vomiting [None]
  - Diarrhoea [None]
  - Dehydration [None]
  - Renal failure [None]
  - Coeliac disease [None]
